FAERS Safety Report 4973707-5 (Version None)
Quarter: 2006Q2

REPORT INFORMATION
  Report Type: 
  Country: None (occurrence: None)
  Receive Date: 20060414
  Receipt Date: 20051031
  Transmission Date: 20061013
  Serious: Yes (Hospitalization)
  Sender: FDA-Public Use
  Company Number: US-MERCK-0511USA00331

PATIENT
  Age: 66 Year
  Sex: Female
  Weight: 64 kg

DRUGS (7)
  1. VIOXX [Suspect]
     Indication: PAIN
     Route: 048
     Dates: start: 20010423, end: 20040707
  2. VIOXX [Suspect]
     Route: 048
     Dates: start: 20010423, end: 20040707
  3. PAXIL [Concomitant]
     Route: 065
  4. CLARINEX [Concomitant]
     Route: 065
  5. MECLIZINE [Concomitant]
     Route: 065
  6. NITROSTAT [Concomitant]
     Route: 065
  7. TOPROL-XL [Concomitant]
     Route: 065

REACTIONS (1)
  - CEREBROVASCULAR ACCIDENT [None]
